FAERS Safety Report 5428114-8 (Version None)
Quarter: 2007Q3

REPORT INFORMATION
  Report Type: 
  Country: None (occurrence: None)
  Receive Date: 20070828
  Receipt Date: 20070827
  Transmission Date: 20080115
  Serious: Yes (Life-Threatening)
  Sender: FDA-Public Use
  Company Number: DE-BOEHRINGER INGELHEIM PHARMACEUTICALS, INC.-2007-DE-04477DE

PATIENT
  Sex: Female
  Weight: 59 kg

DRUGS (15)
  1. SPIRIVA [Suspect]
     Indication: ASTHMA
     Route: 055
  2. SPIRIVA [Suspect]
     Indication: BRONCHITIS CHRONIC
  3. THEOPHYLLINE [Concomitant]
     Indication: ASTHMA
  4. THEOPHYLLINE [Concomitant]
     Indication: BRONCHITIS CHRONIC
  5. KORTISONSPRAY [Concomitant]
  6. SEREVENT [Concomitant]
     Indication: ASTHMA
     Route: 055
  7. SEREVENT [Concomitant]
     Indication: BRONCHITIS CHRONIC
  8. BUDESONIDE [Concomitant]
     Indication: ASTHMA
     Route: 055
  9. BUDESONIDE [Concomitant]
     Indication: BRONCHITIS CHRONIC
  10. SALBULAIR N AUTOHALER [Concomitant]
     Indication: ASTHMA
  11. SALBULAIR N AUTOHALER [Concomitant]
     Indication: BRONCHITIS CHRONIC
  12. INSULIN [Concomitant]
     Indication: TYPE 2 DIABETES MELLITUS
     Dosage: SEVERAL TIMES PER DAY
  13. NASONEX SPRAY [Concomitant]
     Indication: RHINITIS
     Route: 045
  14. SINGULAIR [Concomitant]
     Indication: ASTHMA
  15. SINGULAIR [Concomitant]
     Indication: BRONCHITIS CHRONIC

REACTIONS (3)
  - BRONCHIAL SECRETION RETENTION [None]
  - CONSTIPATION [None]
  - DYSPNOEA [None]
